FAERS Safety Report 15362847 (Version 2)
Quarter: 2018Q4

REPORT INFORMATION
  Report Type: Spontaneous
  Country: CO (occurrence: CO)
  Receive Date: 20180907
  Receipt Date: 20181005
  Transmission Date: 20190204
  Serious: Yes (Hospitalization, Other)
  Sender: FDA-Public Use
  Company Number: CO-UCBSA-2018039256

PATIENT
  Age: 31 Year
  Sex: Female
  Weight: 62 kg

DRUGS (3)
  1. CIMZIA [Suspect]
     Active Substance: CERTOLIZUMAB PEGOL
     Indication: ANKYLOSING SPONDYLITIS
     Dosage: 400 MG, MONTHLY (QM)
     Route: 058
     Dates: start: 20180301
  2. ACTIVA [Concomitant]
     Active Substance: DICLOFENAC SODIUM
     Indication: PRODUCT USED FOR UNKNOWN INDICATION
     Dosage: UNKNOWN DOSE
  3. CEPHRADINE [Concomitant]
     Active Substance: CEPHRADINE
     Indication: HAEMORRHOIDS THROMBOSED

REACTIONS (4)
  - Haemorrhoids thrombosed [Recovered/Resolved]
  - Arthralgia [Not Recovered/Not Resolved]
  - Exposure during pregnancy [Unknown]
  - Breast feeding [Unknown]

NARRATIVE: CASE EVENT DATE: 201803
